FAERS Safety Report 19193877 (Version 6)
Quarter: 2022Q2

REPORT INFORMATION
  Report Type: Report from Study
  Country: CO (occurrence: CO)
  Receive Date: 20210429
  Receipt Date: 20220419
  Transmission Date: 20220720
  Serious: Yes (Disabling, Other)
  Sender: FDA-Public Use
  Company Number: CO-AMGEN-COLSL2021062761

PATIENT
  Age: 52 Year
  Sex: Male

DRUGS (4)
  1. VECTIBIX [Suspect]
     Active Substance: PANITUMUMAB
     Indication: Colorectal cancer metastatic
     Dosage: 532 MILLIGRAM, Q2WK
     Route: 042
     Dates: start: 20200707, end: 20210331
  2. VECTIBIX [Suspect]
     Active Substance: PANITUMUMAB
     Dosage: 532 MILLIGRAM, EVERY 20 DAYS
     Route: 042
     Dates: start: 202106
  3. VECTIBIX [Suspect]
     Active Substance: PANITUMUMAB
     Dosage: 520 MILLIGRAM, EVERY 15 DAYS
     Route: 042
     Dates: end: 20220323
  4. POLYVINYL ALCOHOL [Concomitant]
     Active Substance: POLYVINYL ALCOHOL
     Dosage: 1 DROP, BID
     Route: 031
     Dates: start: 20220328

REACTIONS (13)
  - Neuropathy peripheral [Not Recovered/Not Resolved]
  - Contusion [Not Recovered/Not Resolved]
  - Blister [Not Recovered/Not Resolved]
  - Pain in extremity [Not Recovered/Not Resolved]
  - Visual impairment [Not Recovered/Not Resolved]
  - Nasopharyngitis [Not Recovered/Not Resolved]
  - Skin reaction [Unknown]
  - Myalgia [Not Recovered/Not Resolved]
  - Gait disturbance [Not Recovered/Not Resolved]
  - Weight increased [Not Recovered/Not Resolved]
  - Asthenia [Not Recovered/Not Resolved]
  - Dyspnoea [Not Recovered/Not Resolved]
  - Off label use [Unknown]

NARRATIVE: CASE EVENT DATE: 20210401
